FAERS Safety Report 8108685 (Version 4)
Quarter: 2013Q4

REPORT INFORMATION
  Report Type: Report from Study
  Country: IN (occurrence: IN)
  Receive Date: 20110826
  Receipt Date: 20131016
  Transmission Date: 20140711
  Serious: Yes (Other)
  Sender: FDA-Public Use
  Company Number: IN-PFIZER INC-2011194217

PATIENT
  Age: 59 Year
  Sex: Female
  Weight: 58 kg

DRUGS (11)
  1. TOFACITINIB/TOFACITINIB CITRATE [Suspect]
     Indication: RHEUMATOID ARTHRITIS
     Dosage: 10 MG, 2X/DAY
     Route: 048
     Dates: start: 20091105, end: 20110820
  2. METHOTREXATE SODIUM [Suspect]
     Indication: RHEUMATOID ARTHRITIS
     Dosage: 12.5 MG, WEEKLY
     Route: 048
     Dates: start: 20090212
  3. PREDNISOLONE [Suspect]
     Indication: RHEUMATOID ARTHRITIS
     Dosage: 5 MG, 1X/DAY
     Route: 048
     Dates: start: 20090212
  4. AMLODIPINE [Concomitant]
     Indication: HYPERTENSION
     Dosage: 2.5 MG, 1X/DAY
     Route: 048
     Dates: start: 20080416
  5. DICLOFENAC [Concomitant]
     Indication: RHEUMATOID ARTHRITIS
     Dosage: 50 MG, 1X/DAY
     Route: 048
     Dates: start: 200804
  6. RANITIDINE [Concomitant]
     Indication: GASTRITIS PROPHYLAXIS
     Dosage: 150 MG, 1X/DAY
     Route: 048
     Dates: start: 200804
  7. FOLIC ACID [Concomitant]
     Indication: RHEUMATOID ARTHRITIS
     Dosage: 5 MG, WEEKLY
     Route: 048
     Dates: start: 20090212
  8. CALCIUM [Concomitant]
     Indication: MINERAL SUPPLEMENTATION
     Dosage: 500 MG, 1X/DAY
     Route: 048
     Dates: start: 20090212
  9. LIVOGEN [Concomitant]
     Indication: ANAEMIA
     Dosage: UNK, 2X/DAY
     Route: 048
     Dates: start: 20100206
  10. ACETAMINOPHEN [Concomitant]
     Indication: ARTHRALGIA
     Dosage: 650 MG, 1X/DAY
     Route: 048
     Dates: start: 20110128
  11. ATORVASTATIN [Concomitant]
     Indication: DYSLIPIDAEMIA
     Dosage: 10 MG, 1X/DAY
     Route: 048
     Dates: start: 20110506

REACTIONS (1)
  - Urinary tract infection [Recovered/Resolved]
